FAERS Safety Report 21031427 (Version 1)
Quarter: 2022Q3

REPORT INFORMATION
  Report Type: Spontaneous
  Country: US (occurrence: US)
  Receive Date: 20220701
  Receipt Date: 20220701
  Transmission Date: 20221027
  Serious: No
  Sender: FDA-Public Use
  Company Number: US-GSKCCFUS-Case-01417686_AE-81550

PATIENT
  Age: 83 Year
  Sex: Female

DRUGS (1)
  1. TRELEGY ELLIPTA [Suspect]
     Active Substance: FLUTICASONE FUROATE\UMECLIDINIUM BROMIDE\VILANTEROL TRIFENATATE
     Indication: Chronic obstructive pulmonary disease
     Dosage: 100 MCG/MG, QD, INCREASED TO 200 MCG
     Route: 048
     Dates: start: 20191109

REACTIONS (3)
  - Sputum increased [Unknown]
  - Product prescribing error [Unknown]
  - Drug ineffective [Unknown]

NARRATIVE: CASE EVENT DATE: 20220623
